FAERS Safety Report 8169894-0 (Version None)
Quarter: 2012Q1

REPORT INFORMATION
  Report Type: 
  Country: None (occurrence: None)
  Receive Date: 20120104
  Receipt Date: 20111021
  Transmission Date: 20120608
  Serious: No
  Sender: FDA-Public Use
  Company Number: 2011HGS-002672

PATIENT
  Age: 49 Year
  Sex: Female
  Weight: 85.7298 kg

DRUGS (13)
  1. ZOCOR [Concomitant]
  2. ATACAND [Concomitant]
  3. ADVAIR INHALER (SERETIDE MITE) (FLUTICASONE PROPIONATE, SALMETEROL XIN [Concomitant]
  4. PREDNISONE [Concomitant]
  5. DIAZEPAM [Concomitant]
  6. VITAMIN D (ERGOCALCIFEROL) (ERGOCALCIFEROL) [Concomitant]
  7. ALBUTEROL INHALER (SALBUTAMOL) (SALBUTAMOL) [Concomitant]
  8. PLAQUENIL (HYDROXYCHLOROQUINE SULFATE) (HYDROXYCHLOROQUINE SULFATE) [Concomitant]
  9. FENTANYL PATCHES (FENTANYL) (FENTANYL) [Concomitant]
  10. BENLYSTA [Suspect]
     Indication: SYSTEMIC LUPUS ERYTHEMATOSUS
     Dosage: 1 IN 28 D, INTRAVENOUS DRIP
     Route: 041
     Dates: start: 20110601
  11. HYDROMORPHONE (HYDORMORPHONE) (HYDROMORPHONE) [Concomitant]
  12. PEPCID (FAMOTIDINE) (FAMOTIDINE) [Concomitant]
  13. CYMBALTA [Concomitant]

REACTIONS (6)
  - RHINORRHOEA [None]
  - UPPER-AIRWAY COUGH SYNDROME [None]
  - NAUSEA [None]
  - TREMOR [None]
  - MIGRAINE [None]
  - COUGH [None]
